FAERS Safety Report 23515240 (Version 1)
Quarter: 2024Q1

REPORT INFORMATION
  Report Type: Spontaneous
  Country: US (occurrence: US)
  Receive Date: 20240213
  Receipt Date: 20240213
  Transmission Date: 20240410
  Serious: No
  Sender: FDA-Public Use
  Company Number: US-TEVA-VS-3152660

PATIENT
  Age: 48 Year
  Sex: Female

DRUGS (7)
  1. COPAXONE [Suspect]
     Active Substance: GLATIRAMER ACETATE
     Indication: Product used for unknown indication
     Route: 065
     Dates: start: 2010
  2. KESIMPTA [Concomitant]
     Active Substance: OFATUMUMAB
  3. METFORMIN [Concomitant]
     Active Substance: METFORMIN HYDROCHLORIDE
  4. MOUNJARO [Concomitant]
     Active Substance: TIRZEPATIDE
  5. TIROSINT-SOL [Concomitant]
     Active Substance: LEVOTHYROXINE SODIUM
  6. VITAMIN B12 [Concomitant]
     Active Substance: CYANOCOBALAMIN
  7. WELLBUTRIN [Concomitant]
     Active Substance: BUPROPION HYDROCHLORIDE

REACTIONS (3)
  - Injection site reaction [Unknown]
  - Injection site swelling [Unknown]
  - Injection site urticaria [Unknown]
